FAERS Safety Report 11723441 (Version 1)
Quarter: 2015Q4

REPORT INFORMATION
  Report Type: Spontaneous
  Country: US (occurrence: None)
  Receive Date: 20151110
  Receipt Date: 20151110
  Transmission Date: 20160304
  Serious: No
  Sender: FDA-Public Use
  Company Number: None

PATIENT
  Age: 33 Year
  Sex: Female
  Weight: 74.84 kg

DRUGS (2)
  1. DAILY MULTI VITAMIN [Concomitant]
  2. CIPROFLOXACIN HCL [Suspect]
     Active Substance: CIPROFLOXACIN HYDROCHLORIDE
     Indication: URINARY TRACT INFECTION
     Dosage: 1 TABLET
     Route: 048
     Dates: start: 20151109, end: 20151109

REACTIONS (4)
  - Urticaria [None]
  - Pruritus generalised [None]
  - Burning sensation [None]
  - Muscle spasms [None]

NARRATIVE: CASE EVENT DATE: 20151109
